FAERS Safety Report 21559636 (Version 1)
Quarter: 2022Q4

REPORT INFORMATION
  Report Type: Spontaneous
  Country: US (occurrence: None)
  Receive Date: 20221106
  Receipt Date: 20221106
  Transmission Date: 20230112
  Serious: No
  Sender: FDA-Public Use
  Company Number: None

PATIENT
  Age: 63 Year
  Sex: Female
  Weight: 65.25 kg

DRUGS (13)
  1. PAXLOVID [Suspect]
     Active Substance: NIRMATRELVIR\RITONAVIR
     Indication: COVID-19
     Dosage: FREQUENCY : TWICE A DAY;?
     Route: 048
     Dates: start: 20221020, end: 20221025
  2. VITAMIN D [Concomitant]
     Active Substance: VITAMIN D NOS
  3. PROBIOTICS NOS [Concomitant]
     Active Substance: PROBIOTICS NOS
  4. ZYPAN [Concomitant]
  5. ALLERPLEX [Concomitant]
  6. BIOST [Concomitant]
  7. bone complex [Concomitant]
  8. SUPER EFF [Concomitant]
  9. Pure multivitamin [Concomitant]
  10. MAGNESIUM LACTATE [Concomitant]
     Active Substance: MAGNESIUM LACTATE
  11. GINKGO [Concomitant]
     Active Substance: GINKGO
  12. calcifood powder [Concomitant]
  13. JUICE PLUS [Concomitant]

REACTIONS (2)
  - SARS-CoV-2 test positive [None]
  - Disease recurrence [None]

NARRATIVE: CASE EVENT DATE: 20221030
